FAERS Safety Report 5948319-7 (Version None)
Quarter: 2008Q4

REPORT INFORMATION
  Report Type: 
  Country: None (occurrence: None)
  Receive Date: 20081110
  Receipt Date: 20081110
  Transmission Date: 20090506
  Serious: Yes (Life-Threatening, Other)
  Sender: FDA-Public Use
  Company Number: None

PATIENT
  Age: 25 Year
  Sex: Female
  Weight: 61.2356 kg

DRUGS (1)
  1. ADVIL LIQUI-GELS [Suspect]
     Indication: HEADACHE
     Dosage: 2 CAPSULES 1 PO
     Route: 048
     Dates: start: 20081109, end: 20081109

REACTIONS (4)
  - DYSPHAGIA [None]
  - DYSPNOEA [None]
  - HEADACHE [None]
  - PHARYNGEAL OEDEMA [None]
